FAERS Safety Report 5316503-1 (Version None)
Quarter: 2007Q2

REPORT INFORMATION
  Report Type: 
  Country: None (occurrence: None)
  Receive Date: 20070504
  Receipt Date: 20070424
  Transmission Date: 20071010
  Serious: Yes (Hospitalization, Other)
  Sender: FDA-Public Use
  Company Number: HQWYE863326APR07

PATIENT
  Age: 54 Year
  Sex: Male

DRUGS (6)
  1. SIROLIMUS [Suspect]
     Indication: PROPHYLAXIS AGAINST TRANSPLANT REJECTION
     Dosage: UNSPECIFIED
     Dates: start: 20020901, end: 20050601
  2. CARBOPLATIN [Concomitant]
     Indication: LUNG NEOPLASM MALIGNANT
     Dosage: TOTAL DOSE OF 960 MG/M^2
     Dates: start: 20050101, end: 20050101
  3. GEMCITABINE HCL [Suspect]
     Indication: LUNG NEOPLASM MALIGNANT
     Dosage: TOTAL CUMULATIVE DOSE OF 6240 MG/M^2
     Dates: start: 20050101, end: 20050101
  4. MYCOPHENOLATE MOFETIL [Concomitant]
     Indication: PROPHYLAXIS AGAINST TRANSPLANT REJECTION
     Dates: start: 19970101, end: 20020901
  5. MYCOPHENOLATE MOFETIL [Concomitant]
     Dates: start: 20020901
  6. PREDNISONE [Concomitant]
     Indication: PROPHYLAXIS AGAINST TRANSPLANT REJECTION
     Dates: start: 19970101

REACTIONS (3)
  - CHRONIC ALLOGRAFT NEPHROPATHY [None]
  - NON-SMALL CELL LUNG CANCER [None]
  - THROMBOTIC MICROANGIOPATHY [None]
